FAERS Safety Report 6728572-2 (Version None)
Quarter: 2010Q2

REPORT INFORMATION
  Report Type: 
  Country: None (occurrence: None)
  Receive Date: 20100517
  Receipt Date: 20100510
  Transmission Date: 20101027
  Serious: Yes (Other)
  Sender: FDA-Public Use
  Company Number: AU-PFIZER INC-2010050666

PATIENT
  Age: 68 Year
  Sex: Female

DRUGS (5)
  1. CHAMPIX [Suspect]
     Indication: SMOKING CESSATION THERAPY
     Dosage: 1 MG, 2X/DAY
     Route: 048
     Dates: start: 20100410, end: 20100420
  2. KARVEA [Suspect]
     Indication: HYPERTENSION
     Dosage: 300 MG, UNK
     Route: 048
     Dates: start: 20100323, end: 20100416
  3. RISEDRONATE SODIUM [Concomitant]
     Dosage: 35 MG, WEEKLY
     Route: 048
  4. OMEPRAZOLE [Concomitant]
     Dosage: 20 MG, 1X/DAY
     Route: 048
  5. VITAMIN D [Concomitant]
     Dosage: 50000 IU, 2ND WEEKLY
     Route: 048

REACTIONS (1)
  - HYPONATRAEMIA [None]
